FAERS Safety Report 6431546-2 (Version None)
Quarter: 2009Q4

REPORT INFORMATION
  Report Type: 
  Country: None (occurrence: None)
  Receive Date: 20091106
  Receipt Date: 20091027
  Transmission Date: 20100525
  Serious: Yes (Other)
  Sender: FDA-Public Use
  Company Number: BR-ELI_LILLY_AND_COMPANY-BR200911001418

PATIENT
  Sex: Female

DRUGS (1)
  1. HUMULIN 70/30 [Suspect]
     Dosage: UNK, UNKNOWN
     Route: 065
     Dates: start: 19990101, end: 20091001

REACTIONS (1)
  - CEREBROVASCULAR ACCIDENT [None]
